FAERS Safety Report 20981258 (Version 10)
Quarter: 2023Q4

REPORT INFORMATION
  Report Type: Spontaneous
  Country: US (occurrence: US)
  Receive Date: 20220620
  Receipt Date: 20231218
  Transmission Date: 20240110
  Serious: No
  Sender: FDA-Public Use
  Company Number: US-PFIZER INC-PV202200005116

PATIENT
  Age: 75 Year
  Sex: Female

DRUGS (3)
  1. IBRANCE [Suspect]
     Active Substance: PALBOCICLIB
     Dosage: 125 MG
  2. IBRANCE [Suspect]
     Active Substance: PALBOCICLIB
     Dosage: 100 MG
  3. IBRANCE [Suspect]
     Active Substance: PALBOCICLIB
     Dosage: 125 MG, CYCLIC DAILY DAYS 1-21 OF A 28 DAY CYCLE (3 WEEKS ON AND 1 WEEK OFF)
     Route: 048

REACTIONS (7)
  - Fatigue [Recovered/Resolved]
  - Nasopharyngitis [Unknown]
  - Malaise [Unknown]
  - Influenza [Unknown]
  - Diarrhoea [Unknown]
  - Product packaging confusion [Unknown]
  - Nocturia [Unknown]
